FAERS Safety Report 18695812 (Version 1)
Quarter: 2021Q1

REPORT INFORMATION
  Report Type: Spontaneous
  Country: US (occurrence: US)
  Receive Date: 20210104
  Receipt Date: 20210104
  Transmission Date: 20210419
  Serious: Yes (Hospitalization)
  Sender: FDA-Public Use
  Company Number: US-MYLANLABS-2020M1106439

PATIENT
  Age: 62 Year
  Sex: Female

DRUGS (2)
  1. FENTANYL. [Suspect]
     Active Substance: FENTANYL
     Indication: ANALGESIC THERAPY
     Dosage: DRIP
  2. FENTANYL. [Suspect]
     Active Substance: FENTANYL
     Indication: SEDATIVE THERAPY

REACTIONS (1)
  - Intestinal pseudo-obstruction [Recovered/Resolved]
